FAERS Safety Report 9797024 (Version 1)
Quarter: 2014Q1

REPORT INFORMATION
  Report Type: Spontaneous
  Country: ES (occurrence: ES)
  Receive Date: 20140105
  Receipt Date: 20140105
  Transmission Date: 20141002
  Serious: Yes (Hospitalization)
  Sender: FDA-Public Use
  Company Number: ES-009507513-1401ESP000382

PATIENT
  Age: 54 Year
  Sex: Male

DRUGS (4)
  1. PEGINTRON [Suspect]
     Indication: CHRONIC HEPATITIS C
     Dosage: 120 MICROGRAM, QW
     Route: 058
     Dates: start: 20131018, end: 20131129
  2. REBETOL [Suspect]
     Indication: CHRONIC HEPATITIS C
     Dosage: REBETOL 200MG (2-0-3)
     Route: 048
     Dates: start: 20131018, end: 20131129
  3. INCIVEK [Suspect]
     Indication: CHRONIC HEPATITIS C
     Dosage: 3 COMP/12H
     Route: 048
     Dates: start: 20131018, end: 20131129
  4. EPREX [Concomitant]
     Dosage: 3000 IU, QW
     Route: 058

REACTIONS (1)
  - Pancytopenia [Recovering/Resolving]
